FAERS Safety Report 6888243-9 (Version None)
Quarter: 2010Q3

REPORT INFORMATION
  Report Type: 
  Country: None (occurrence: None)
  Receive Date: 20100730
  Receipt Date: 20100720
  Transmission Date: 20110219
  Serious: Yes (Hospitalization)
  Sender: FDA-Public Use
  Company Number: GXKR2010GB08096

PATIENT
  Age: 64 Year
  Sex: Female

DRUGS (18)
  1. OXALIPLATIN [Suspect]
     Indication: COLORECTAL CANCER
     Dosage: UNK
     Route: 041
     Dates: start: 20090210, end: 20090210
  2. OXALIPLATIN [Suspect]
     Dosage: UNK
     Route: 041
     Dates: start: 20090421, end: 20090421
  3. FLUOROURACIL [Suspect]
     Indication: COLORECTAL CANCER
     Dosage: UNK
     Route: 041
     Dates: start: 20090210, end: 20090212
  4. FLUOROURACIL [Suspect]
     Dosage: UNK
     Route: 041
     Dates: start: 20090421, end: 20090423
  5. ATORVASTATIN [Concomitant]
     Dosage: 10 MG, UNK
  6. ANTITHROMBOTIC AGENTS [Concomitant]
     Indication: THROMBOSIS PROPHYLAXIS
     Dosage: 1 DF, UNK
     Dates: start: 20090210, end: 20090423
  7. CINCHOCAINE HYDROCHLORIDE [Concomitant]
     Dosage: UNK
     Dates: start: 20090207
  8. DOMPERIDONE [Concomitant]
     Dosage: 20 MG, TID
  9. FELODIPINE [Concomitant]
     Dosage: UNK
     Dates: start: 20090130
  10. LANSOPRAZOLE [Concomitant]
     Dosage: UNK
     Dates: start: 20090130
  11. LOSARTAN POSTASSIUM [Concomitant]
     Dosage: 50 MG, QD
     Dates: start: 19970301
  12. MAGNESIUM SALICYLATE [Concomitant]
  13. NULYTELY [Concomitant]
     Dosage: UNK
     Dates: start: 20090128
  14. ORAMORPH SR [Concomitant]
     Dosage: UNK
     Dates: start: 20090129
  15. OXYCODONE HCL [Concomitant]
     Dosage: UNK
     Dates: start: 20090209
  16. PARACETAMOL [Concomitant]
     Dosage: 1 G, QID
     Dates: start: 20090128
  17. SENOKOT                                 /UNK/ [Concomitant]
     Dosage: UNK
     Dates: start: 20060101, end: 20090130
  18. OXYCONTIN [Concomitant]
     Dosage: 110 MG, BID
     Dates: start: 20090206

REACTIONS (2)
  - ANAEMIA [None]
  - SEPSIS [None]
